FAERS Safety Report 10223009 (Version 1)
Quarter: 2014Q2

REPORT INFORMATION
  Report Type: Report from Study
  Country: US (occurrence: US)
  Receive Date: 20140607
  Receipt Date: 20140607
  Transmission Date: 20141212
  Serious: Yes (Other)
  Sender: FDA-Public Use
  Company Number: PHEH2014US011098

PATIENT
  Sex: Female

DRUGS (4)
  1. TASIGNA [Suspect]
     Indication: CHRONIC MYELOID LEUKAEMIA
     Dosage: 150 MG, BID
     Route: 048
     Dates: start: 20130416
  2. GLIMEPIRIDE [Concomitant]
     Dosage: 1 MG, UNK
  3. LEVOTHYROXINE [Concomitant]
     Dosage: 150 UG, UNK
  4. MICARDIS [Concomitant]
     Dosage: 40 MG, UNK

REACTIONS (3)
  - Diabetes mellitus [Unknown]
  - Rash [Unknown]
  - Blood cholesterol increased [Unknown]
